FAERS Safety Report 10045172 (Version 1)
Quarter: 2014Q1

REPORT INFORMATION
  Report Type: Spontaneous
  Country: US (occurrence: None)
  Receive Date: 20140306
  Receipt Date: 20140306
  Transmission Date: 20141002
  Serious: Yes (Other)
  Sender: FDA-Public Use
  Company Number: 163-21880-13052939

PATIENT
  Age: 75 Year
  Sex: Female

DRUGS (18)
  1. REVLIMID (LENALIDOMIDE) (10 MILLIGRAM, CAPSULES) [Suspect]
     Indication: PLASMA CELL MYELOMA
     Dosage: 10 MG, 21 IN 28 D, PO
     Route: 048
     Dates: start: 20130427, end: 20130517
  2. ALLOPURINOL (ALLOPURINOL) (TABLETS) [Concomitant]
  3. HEMETAB (MULTIVITAMINS AND IRON) (TABLETS) [Concomitant]
  4. NEXIUM (ESOMEPRAZOLE) (CAPSULES) [Concomitant]
  5. POLYETHYLENE GLYCOL (MACROGOL) (POWDER) [Concomitant]
  6. CIPROFLOXACIN (CIPROFLOXACIN) (TABLETS) [Concomitant]
  7. PHENAZOPYRIDINE (PHENAZOPYRIDINE) (TABLETS) [Concomitant]
  8. JANUVIA (SITAGLIPTIN PHOSPHATE) (TABLETS) [Concomitant]
  9. DEXAMETHASONE (DEXAMETHASONE) [Concomitant]
  10. FUROSEMIDE (FUROSEMIDE) (TABLETS) [Concomitant]
  11. POTASSIUM CHLORIDE (POTASSIUM CHLORIDE) (CAPSULES) [Concomitant]
  12. ISOSORBIDE MONONITRATE (ISOSORBIDE MONONITRATE) [Concomitant]
  13. NOVOLOG (INSULIN ASPART) [Concomitant]
  14. ZETIA (EZETIMIBE) (TABLETS) [Concomitant]
  15. FOLIC ACID (FOLIC ACID) (TABLETS) [Concomitant]
  16. LOVAZA (OMEGA-3 MARINE TRIGLYCERIDES) (TABLETS) [Concomitant]
  17. HYDRALAZINE (HYDRALAZINE) (TABLETS) [Concomitant]
  18. AMLODIPINE BESYLATE (AMLODIPINE BESILATE) (TABLETS) [Concomitant]

REACTIONS (1)
  - Plasma cell myeloma [None]
